FAERS Safety Report 20023771 (Version 3)
Quarter: 2021Q4

REPORT INFORMATION
  Report Type: Spontaneous
  Country: GB (occurrence: GB)
  Receive Date: 20211102
  Receipt Date: 20211203
  Transmission Date: 20220303
  Serious: Yes (Other)
  Sender: FDA-Public Use
  Company Number: GB-DEXPHARM-20190729

PATIENT

DRUGS (17)
  1. DICLOFENAC [Suspect]
     Active Substance: DICLOFENAC
     Indication: Product used for unknown indication
     Dosage: UNK UNK, QID
  2. PREDNISOLONE [Suspect]
     Active Substance: PREDNISOLONE
     Indication: Product used for unknown indication
     Dosage: 0.5 %, QID (FOUR TIMES PER DAY)
     Route: 065
  3. PREDNISOLONE [Suspect]
     Active Substance: PREDNISOLONE
     Dosage: 2 %, QD (0.5 PERCENT, DAILY FOUR TIMES PER DAY )
     Route: 065
  4. PREDNISOLONE [Suspect]
     Active Substance: PREDNISOLONE
     Dosage: 1 DOSAGE FORM, QD
     Route: 065
  5. LEVOFLOXACIN [Suspect]
     Active Substance: LEVOFLOXACIN
     Dosage: UNK, UNK, 2QH
     Route: 065
  6. LEVOFLOXACIN [Suspect]
     Active Substance: LEVOFLOXACIN
     Dosage: 0.5 % EVERY 2 HOUR (0.5 PERCENT Q2H)
     Route: 065
  7. CHLORAMPHENICOL [Suspect]
     Active Substance: CHLORAMPHENICOL
     Indication: Product used for unknown indication
     Dosage: 8 %, QD (8 PERCENT, QD (2 %, QID ))
  8. CHLORAMPHENICOL [Suspect]
     Active Substance: CHLORAMPHENICOL
     Dosage: UNK, UNK, QHS
     Route: 065
  9. CHLORAMPHENICOL [Suspect]
     Active Substance: CHLORAMPHENICOL
     Dosage: 1 %, QD (1 PERCENT, PM)
     Route: 065
  10. CHLORAMPHENICOL [Suspect]
     Active Substance: CHLORAMPHENICOL
     Dosage: 8 %, QD (2 PERCENT QID)
     Route: 065
  11. CHLORAMPHENICOL [Suspect]
     Active Substance: CHLORAMPHENICOL
     Dosage: 2 %, QD (0.5 PERCENT QID, FOUR TIMES PER DAY)
     Route: 065
  12. SODIUM HYALURONATE [Suspect]
     Active Substance: HYALURONATE SODIUM
     Indication: Product used for unknown indication
     Dosage: 0.2 %, EVERY TWO HOURS
  13. CYCLOPENTOLATE [Suspect]
     Active Substance: CYCLOPENTOLATE
     Indication: Product used for unknown indication
     Dosage: 9 %, QD (9 PERCENT, QD (3 %, TID))
     Route: 065
  14. CYCLOPENTOLATE [Suspect]
     Active Substance: CYCLOPENTOLATE
     Dosage: 9 DOSAGE FORM, QD (3 DOSAGE FORM, DAILY THREE TIMES PER DAY)
     Route: 065
  15. CYCLOPENTOLATE [Suspect]
     Active Substance: CYCLOPENTOLATE
     Dosage: 3 %, QD (1 PERCENT THREE TIMES PER DAY )
     Route: 065
  16. CYCLOPENTOLATE [Suspect]
     Active Substance: CYCLOPENTOLATE
     Dosage: 3 DOSAGE FORM, QD (1 DOSAGE FORM, TID (THREE TIMES PER DAY)  )
     Route: 065
  17. CYCLOPENTOLATE [Suspect]
     Active Substance: CYCLOPENTOLATE
     Dosage: 3 DOSAGE FORM, QD (3 DOSAGE FORM, QD (1 DF, TID) )
     Route: 065

REACTIONS (1)
  - Keratopathy [Recovered/Resolved with Sequelae]
